FAERS Safety Report 6259870-7 (Version None)
Quarter: 2009Q3

REPORT INFORMATION
  Report Type: 
  Country: None (occurrence: None)
  Receive Date: 20090708
  Receipt Date: 20090630
  Transmission Date: 20100115
  Serious: Yes (Death, Other)
  Sender: FDA-Public Use
  Company Number: TR-ROCHE-641712

PATIENT
  Age: 25 Year
  Sex: Male

DRUGS (9)
  1. VALGANCICLOVIR HCL [Suspect]
     Dosage: STARTED ON 3RD DAY AND DISCONTINUED ON DAY 20
     Route: 048
  2. MYCOPHENOLATE MOFETIL [Suspect]
     Dosage: STARTED ON DAY 1 AND DISCONTINUED ON DAY 20
     Route: 065
  3. BASILIXIMAB [Suspect]
     Route: 065
  4. METHYLPREDNISOLONE [Suspect]
     Route: 065
  5. METHYLPREDNISOLONE [Suspect]
     Dosage: RAPIDLY TAPERED TO ONE THIRD OF INITIAL DOSE IN 10 DAYS
     Route: 065
  6. ANTITHYMOCYTE GLOBULIN [Suspect]
     Route: 065
  7. PIPERACILLIN SODIUM AND TAZOBACTAM SODIUM [Concomitant]
  8. ACYCLOVIR [Concomitant]
  9. IMMUNE GLOBULIN IV NOS [Concomitant]
     Route: 042

REACTIONS (8)
  - ACUTE RESPIRATORY DISTRESS SYNDROME [None]
  - BONE MARROW FAILURE [None]
  - GENERAL PHYSICAL HEALTH DETERIORATION [None]
  - HERPES VIRUS INFECTION [None]
  - OVERDOSE [None]
  - PYREXIA [None]
  - RENAL IMPAIRMENT [None]
  - SEPSIS [None]
